FAERS Safety Report 4639221-1 (Version None)
Quarter: 2005Q2

REPORT INFORMATION
  Report Type: 
  Country: None (occurrence: None)
  Receive Date: 20050418
  Receipt Date: 20050404
  Transmission Date: 20051028
  Serious: Yes (Other)
  Sender: FDA-Public Use
  Company Number: 2005-0008061

PATIENT
  Age: 56 Year
  Sex: Male

DRUGS (14)
  1. HEPSERA [Suspect]
     Indication: HEPATITIS
     Dosage: 10 MG, 1 IN 1 D, ORAL
     Route: 048
     Dates: start: 20041209, end: 20041229
  2. HUSCODE (HUSCODE) [Suspect]
     Indication: COUGH
     Dosage: ORAL
     Route: 048
     Dates: start: 20041130, end: 20041209
  3. MUCOSOLVAN (AMBROXOL HYDROCHLORIDE) [Suspect]
     Indication: COUGH
     Dosage: ORAL
     Route: 048
     Dates: start: 20041130, end: 20041209
  4. ZEFFIX (LAMIVUDINE) [Concomitant]
  5. HEPAN ED (EPAN ED) [Concomitant]
  6. BIOFERMIN R (STREPTOCOCCUS FAECALIS) [Concomitant]
  7. URSODIOL [Concomitant]
  8. ALDACTONE [Concomitant]
  9. FUROSEMIDE [Concomitant]
  10. ZANTAC [Concomitant]
  11. MONILAC (LACTULOSE) [Concomitant]
  12. SHAKUYAKU-KENZO-TO (SHAKUYAKUKANZOUTOU) [Concomitant]
  13. STRONG NEO-MINOPHAGEN C (STRONG NEO-MINOPHAGEN C) [Concomitant]
  14. ALBUMIN (HUMAN) [Concomitant]

REACTIONS (1)
  - HENOCH-SCHONLEIN PURPURA [None]
